FAERS Safety Report 17774798 (Version 1)
Quarter: 2020Q2

REPORT INFORMATION
  Report Type: Spontaneous
  Country: US (occurrence: US)
  Receive Date: 20200512
  Receipt Date: 20200512
  Transmission Date: 20200714
  Serious: Yes (Death)
  Sender: FDA-Public Use
  Company Number: None

PATIENT
  Age: 88 Year
  Sex: Male
  Weight: 63 kg

DRUGS (22)
  1. BACITRACIN. [Concomitant]
     Active Substance: BACITRACIN
  2. ASPIRIN. [Concomitant]
     Active Substance: ASPIRIN
  3. COLACE [Concomitant]
     Active Substance: DOCUSATE SODIUM
  4. COUMADIN [Concomitant]
     Active Substance: WARFARIN SODIUM
  5. DULCOLAX NOS [Concomitant]
     Active Substance: BISACODYL OR DOCUSATE SODIUM
  6. PRILOSEC [Concomitant]
     Active Substance: OMEPRAZOLE MAGNESIUM
  7. ZETIA [Concomitant]
     Active Substance: EZETIMIBE
  8. GLUCOPHAGE [Concomitant]
     Active Substance: METFORMIN HYDROCHLORIDE
  9. PROTONIX [Concomitant]
     Active Substance: PANTOPRAZOLE SODIUM
  10. CARDURA [Concomitant]
     Active Substance: DOXAZOSIN MESYLATE
  11. PROSCAR [Concomitant]
     Active Substance: FINASTERIDE
  12. ANAGRELIDE. [Suspect]
     Active Substance: ANAGRELIDE HYDROCHLORIDE
     Indication: ESSENTIAL THROMBOCYTHAEMIA
     Route: 048
     Dates: start: 20200421, end: 20200430
  13. MIRALAX [Concomitant]
     Active Substance: POLYETHYLENE GLYCOL 3350
  14. VITAMIN C [Concomitant]
     Active Substance: ASCORBIC ACID
  15. ACETAMINOPHEN. [Concomitant]
     Active Substance: ACETAMINOPHEN
  16. ALBUTEROL SULFATE. [Concomitant]
     Active Substance: ALBUTEROL SULFATE
  17. AMARYL [Concomitant]
     Active Substance: GLIMEPIRIDE
  18. MULTIVITAMIN [Concomitant]
     Active Substance: VITAMINS
  19. LACTULOSE. [Concomitant]
     Active Substance: LACTULOSE
  20. FERROUS SULFATE. [Concomitant]
     Active Substance: FERROUS SULFATE
  21. NEURONTIN [Concomitant]
     Active Substance: GABAPENTIN
  22. SENOKOT [Concomitant]
     Active Substance: SENNOSIDES

REACTIONS (1)
  - Death [None]

NARRATIVE: CASE EVENT DATE: 20200430
